FAERS Safety Report 4770931-1 (Version None)
Quarter: 2005Q3

REPORT INFORMATION
  Report Type: 
  Country: None (occurrence: None)
  Receive Date: 20050915
  Receipt Date: 20050908
  Transmission Date: 20060218
  Serious: Yes (Other)
  Sender: FDA-Public Use
  Company Number: 200516516US

PATIENT
  Sex: Female

DRUGS (1)
  1. ARAVA [Suspect]
     Dosage: DOSE: NOT PROVIDED

REACTIONS (3)
  - BLOOD BILIRUBIN INCREASED [None]
  - HEPATITIS ACUTE [None]
  - JAUNDICE [None]
